FAERS Safety Report 17150234 (Version 1)
Quarter: 2019Q4

REPORT INFORMATION
  Report Type: Spontaneous
  Country: US (occurrence: US)
  Receive Date: 20191213
  Receipt Date: 20191213
  Transmission Date: 20200122
  Serious: Yes (Hospitalization, Other)
  Sender: FDA-Public Use
  Company Number: US-ELI_LILLY_AND_COMPANY-US201912001230

PATIENT
  Age: 67 Year
  Sex: Male
  Weight: 145 kg

DRUGS (1)
  1. TRULICITY [Suspect]
     Active Substance: DULAGLUTIDE
     Indication: TYPE 2 DIABETES MELLITUS
     Dosage: 1.5 MG, UNKNOWN
     Route: 058

REACTIONS (6)
  - Dyspnoea [Recovered/Resolved]
  - Coronary artery occlusion [Recovered/Resolved]
  - Coronary artery occlusion [Recovered/Resolved]
  - Shock [Recovered/Resolved]
  - Overweight [Not Recovered/Not Resolved]
  - Disturbance in attention [Recovered/Resolved]

NARRATIVE: CASE EVENT DATE: 201909
